FAERS Safety Report 5621580-4 (Version None)
Quarter: 2008Q1

REPORT INFORMATION
  Report Type: 
  Country: None (occurrence: None)
  Receive Date: 20080211
  Receipt Date: 20080129
  Transmission Date: 20080703
  Serious: Yes (Hospitalization)
  Sender: FDA-Public Use
  Company Number: CZ-ELI_LILLY_AND_COMPANY-CZ200712001185

PATIENT
  Age: 11 Year
  Sex: Male
  Weight: 46 kg

DRUGS (4)
  1. STRATTERA [Suspect]
     Indication: ATTENTION DEFICIT/HYPERACTIVITY DISORDER
     Dosage: 18 MG, DAILY (1/D)
     Route: 048
     Dates: start: 20070924, end: 20070901
  2. STRATTERA [Suspect]
     Dosage: 36 MG, DAILY (1/D)
     Route: 048
     Dates: start: 20071001, end: 20071001
  3. STRATTERA [Suspect]
     Dosage: 40 MG, DAILY (1/D)
     Route: 048
     Dates: start: 20071020, end: 20071123
  4. SERETIDE [Concomitant]
     Indication: ASTHMA
     Dosage: UNK, 2/D
     Route: 055

REACTIONS (3)
  - ATONIC SEIZURES [None]
  - HEADACHE [None]
  - TIC [None]
